FAERS Safety Report 4560167-1 (Version None)
Quarter: 2005Q1

REPORT INFORMATION
  Report Type: 
  Country: None (occurrence: None)
  Receive Date: 20050125
  Receipt Date: 20050117
  Transmission Date: 20050727
  Serious: Yes (Life-Threatening, Hospitalization)
  Sender: FDA-Public Use
  Company Number: MY-BOEHRINGER INGELHEIM PHARMMACEUTICALS, INC.-2005-BP-00695SG

PATIENT
  Sex: Male
  Weight: 170 kg

DRUGS (9)
  1. MICARDIS [Suspect]
     Indication: DIABETIC NEPHROPATHY
     Route: 048
     Dates: start: 20041116
  2. DIOVAN [Suspect]
     Indication: DIABETIC NEPHROPATHY
     Route: 048
     Dates: start: 20041116
  3. PLACEBO [Suspect]
     Indication: DIABETIC NEPHROPATHY
     Route: 048
     Dates: start: 20041116
  4. ASPIRIN [Suspect]
     Indication: ISCHAEMIC HEART DISEASE PROPHYLAXIS
     Route: 048
  5. FRUSEMIDE [Concomitant]
     Indication: OEDEMA PERIPHERAL
     Route: 048
     Dates: start: 20041130
  6. SLOW-K [Concomitant]
     Indication: OEDEMA PERIPHERAL
     Route: 048
     Dates: start: 20041130, end: 20050112
  7. DIAMICORN MR (GLICLAZIDE) [Concomitant]
     Indication: DIABETES MELLITUS
     Route: 048
  8. AMARYL [Concomitant]
     Indication: DIABETES MELLITUS
     Route: 048
     Dates: start: 20041011
  9. METROPROLOL [Concomitant]
     Indication: HYPERTENSION
     Route: 048
     Dates: start: 20041018

REACTIONS (1)
  - ANAEMIA [None]
